FAERS Safety Report 16112009 (Version 1)
Quarter: 2019Q1

REPORT INFORMATION
  Report Type: Report from Study
  Country: US (occurrence: US)
  Receive Date: 20190325
  Receipt Date: 20190325
  Transmission Date: 20190418
  Serious: Yes (Hospitalization, Other)
  Sender: FDA-Public Use
  Company Number: US-GILEAD-2019-0398542

PATIENT
  Age: 55 Year
  Sex: Female

DRUGS (26)
  1. LORATADINE. [Concomitant]
     Active Substance: LORATADINE
  2. ZOCOR [Concomitant]
     Active Substance: SIMVASTATIN
  3. AMBIEN [Concomitant]
     Active Substance: ZOLPIDEM TARTRATE
  4. LUPRON DEPOT [Concomitant]
     Active Substance: LEUPROLIDE ACETATE
  5. SILDENAFIL. [Concomitant]
     Active Substance: SILDENAFIL
  6. VOLTAREN [DICLOFENAC] [Concomitant]
     Active Substance: DICLOFENAC SODIUM
  7. COLCHICINE. [Concomitant]
     Active Substance: COLCHICINE
  8. VITAMIN B1 [THIAMINE HYDROCHLORIDE] [Concomitant]
  9. GLIPIZIDE. [Concomitant]
     Active Substance: GLIPIZIDE
  10. K-TAB [Concomitant]
     Active Substance: POTASSIUM CHLORIDE
  11. SLOW-MAG [Concomitant]
     Active Substance: MAGNESIUM CHLORIDE
  12. FLONASE [Concomitant]
     Active Substance: FLUTICASONE PROPIONATE
  13. VITAMIN B12 + FOLIC ACID [Concomitant]
  14. UPTRAVI [Concomitant]
     Active Substance: SELEXIPAG
  15. AMILORIDE [Concomitant]
     Active Substance: AMILORIDE
  16. WARFARIN [Concomitant]
     Active Substance: WARFARIN
  17. OMEPRAZOLE. [Concomitant]
     Active Substance: OMEPRAZOLE
  18. PERCOCET [Concomitant]
     Active Substance: ACETAMINOPHEN\OXYCODONE HYDROCHLORIDE
  19. RANITIDINE. [Concomitant]
     Active Substance: RANITIDINE
  20. VENTOLIN HFA [Concomitant]
     Active Substance: ALBUTEROL SULFATE
  21. AZATHIOPRINE. [Concomitant]
     Active Substance: AZATHIOPRINE
  22. HYDROXYCHLOROQUINE [Concomitant]
     Active Substance: HYDROXYCHLOROQUINE
  23. DILAUDID [Concomitant]
     Active Substance: HYDROMORPHONE HYDROCHLORIDE
  24. AMBRISENTAN [Suspect]
     Active Substance: AMBRISENTAN
     Indication: PULMONARY ARTERIAL HYPERTENSION
     Dosage: 10 MG, QD
     Route: 048
     Dates: start: 201402
  25. FUROSEMIDE. [Concomitant]
     Active Substance: FUROSEMIDE
  26. MVI [VITAMINS NOS] [Concomitant]

REACTIONS (1)
  - Retroperitoneal haemorrhage [Unknown]
